FAERS Safety Report 18877732 (Version 1)
Quarter: 2021Q1

REPORT INFORMATION
  Report Type: Spontaneous
  Country: US (occurrence: US)
  Receive Date: 20210211
  Receipt Date: 20210211
  Transmission Date: 20210420
  Serious: Yes (Other)
  Sender: FDA-Public Use
  Company Number: US-ASTRAZENECA-2018SF21126

PATIENT
  Sex: Female
  Weight: 88.9 kg

DRUGS (54)
  1. OMEPRAZOLE. [Suspect]
     Active Substance: OMEPRAZOLE
     Indication: GASTROOESOPHAGEAL REFLUX DISEASE
     Dosage: GENERIC
     Route: 065
     Dates: start: 20190722, end: 20190906
  2. TRAMADOL. [Concomitant]
     Active Substance: TRAMADOL
     Indication: PAIN
     Dates: start: 2010
  3. TIMOLOL. [Concomitant]
     Active Substance: TIMOLOL
     Indication: HYPERTENSION
     Dates: start: 2010
  4. ALOGLIPTIN. [Concomitant]
     Active Substance: ALOGLIPTIN
  5. CARVEDILOL. [Concomitant]
     Active Substance: CARVEDILOL
  6. FUROSEMIDE. [Concomitant]
     Active Substance: FUROSEMIDE
     Indication: RENAL DISORDER
     Dates: start: 2010
  7. DIOVAN [Concomitant]
     Active Substance: VALSARTAN
     Indication: HYPERTENSION
     Dates: start: 2010, end: 2013
  8. LANTUS [Concomitant]
     Active Substance: INSULIN GLARGINE
  9. FUROSEMIDE. [Concomitant]
     Active Substance: FUROSEMIDE
  10. DOXAZOSIN [Concomitant]
     Active Substance: DOXAZOSIN MESYLATE
  11. AMOXICILLIN. [Concomitant]
     Active Substance: AMOXICILLIN
     Indication: INFECTION
     Dates: start: 2010
  12. VALSARTAN. [Concomitant]
     Active Substance: VALSARTAN
  13. AZITHROMYCIN ANHYDROUS. [Concomitant]
     Active Substance: AZITHROMYCIN ANHYDROUS
  14. PROCRIT [Concomitant]
     Active Substance: ERYTHROPOIETIN
  15. GLIMEPIRIDE. [Concomitant]
     Active Substance: GLIMEPIRIDE
     Indication: DIABETES MELLITUS
     Dates: start: 2014
  16. ASPIRIN. [Concomitant]
     Active Substance: ASPIRIN
     Indication: ANTICOAGULANT THERAPY
     Dates: start: 2008
  17. ACETAMINOPHEN. [Concomitant]
     Active Substance: ACETAMINOPHEN
     Indication: RENAL FAILURE
  18. FAMOTIDINE. [Concomitant]
     Active Substance: FAMOTIDINE
  19. APIDRA [Concomitant]
     Active Substance: INSULIN GLULISINE
  20. VYTORIN [Concomitant]
     Active Substance: EZETIMIBE\SIMVASTATIN
  21. METRONIDAZOLE. [Concomitant]
     Active Substance: METRONIDAZOLE
  22. HYDROCHLOROTHIAZIDE. [Concomitant]
     Active Substance: HYDROCHLOROTHIAZIDE
  23. LOSARTAN. [Concomitant]
     Active Substance: LOSARTAN
  24. HYDRALAZINE [Concomitant]
     Active Substance: HYDRALAZINE HYDROCHLORIDE
  25. HUMALOG [Concomitant]
     Active Substance: INSULIN LISPRO
  26. CARISOPRODOL. [Concomitant]
     Active Substance: CARISOPRODOL
  27. HYDROCODON [Concomitant]
     Active Substance: HYDROCODONE
  28. FOLIC ACID. [Concomitant]
     Active Substance: FOLIC ACID
  29. PROTONIX [Suspect]
     Active Substance: PANTOPRAZOLE SODIUM
     Indication: GASTROOESOPHAGEAL REFLUX DISEASE
     Route: 065
     Dates: start: 20150809, end: 20170206
  30. PROTONIX [Suspect]
     Active Substance: PANTOPRAZOLE SODIUM
     Indication: GASTROOESOPHAGEAL REFLUX DISEASE
     Route: 065
     Dates: start: 20160308, end: 20181211
  31. FLUCONAZOLE. [Concomitant]
     Active Substance: FLUCONAZOLE
  32. TRAMADOL. [Concomitant]
     Active Substance: TRAMADOL
  33. VITAMIN D2 [Concomitant]
     Active Substance: ERGOCALCIFEROL
  34. IRBESARTAN. [Concomitant]
     Active Substance: IRBESARTAN
  35. PROTONIX [Suspect]
     Active Substance: PANTOPRAZOLE SODIUM
     Indication: GASTROOESOPHAGEAL REFLUX DISEASE
     Dosage: MR
     Route: 048
     Dates: start: 20160819
  36. METFORMIN [Concomitant]
     Active Substance: METFORMIN HYDROCHLORIDE
     Indication: DIABETES MELLITUS
     Dates: start: 2010, end: 2014
  37. LEVOTHYROXINE. [Concomitant]
     Active Substance: LEVOTHYROXINE
     Indication: HYPOTHYROIDISM
     Dates: start: 2015
  38. LASIX [Concomitant]
     Active Substance: FUROSEMIDE
  39. TERAZOSIN [Concomitant]
     Active Substance: TERAZOSIN HYDROCHLORIDE
  40. PROMETHAZINE [Concomitant]
     Active Substance: PROMETHAZINE HYDROCHLORIDE
  41. LEVOTHYROXINE. [Concomitant]
     Active Substance: LEVOTHYROXINE
  42. SULFAMETHOXAZOLE [Concomitant]
     Active Substance: SULFAMETHOXAZOLE
  43. SIMVASTATIN. [Concomitant]
     Active Substance: SIMVASTATIN
  44. CLINDAMYCIN. [Concomitant]
     Active Substance: CLINDAMYCIN
  45. PROTONIX [Suspect]
     Active Substance: PANTOPRAZOLE SODIUM
     Indication: GASTROOESOPHAGEAL REFLUX DISEASE
     Route: 065
     Dates: start: 2005, end: 2015
  46. PROTONIX [Suspect]
     Active Substance: PANTOPRAZOLE SODIUM
     Indication: GASTROOESOPHAGEAL REFLUX DISEASE
     Dosage: GENERIC
     Route: 065
     Dates: start: 20170216, end: 20180403
  47. POTASSIUM CHLORIDE. [Concomitant]
     Active Substance: POTASSIUM CHLORIDE
  48. TOUJEO [Concomitant]
     Active Substance: INSULIN GLARGINE
  49. AMLODIPINE [Concomitant]
     Active Substance: AMLODIPINE BESYLATE
  50. RANITIDINE. [Concomitant]
     Active Substance: RANITIDINE
  51. BENZONATATE. [Concomitant]
     Active Substance: BENZONATATE
  52. FERROUS SULFATE. [Concomitant]
     Active Substance: FERROUS SULFATE
  53. COLCHICINE. [Concomitant]
     Active Substance: COLCHICINE
  54. ALLOPURINOL. [Concomitant]
     Active Substance: ALLOPURINOL

REACTIONS (4)
  - Chronic kidney disease [Not Recovered/Not Resolved]
  - Acute kidney injury [Not Recovered/Not Resolved]
  - Renal failure [Unknown]
  - End stage renal disease [Not Recovered/Not Resolved]
